FAERS Safety Report 5917223-2 (Version None)
Quarter: 2008Q4

REPORT INFORMATION
  Report Type: 
  Country: None (occurrence: None)
  Receive Date: 20081014
  Receipt Date: 20081001
  Transmission Date: 20090506
  Serious: Yes (Other)
  Sender: FDA-Public Use
  Company Number: US-AMGEN-US311012

PATIENT
  Age: 87 Year
  Sex: Female

DRUGS (2)
  1. NPLATE [Suspect]
     Indication: IDIOPATHIC THROMBOCYTOPENIC PURPURA
     Dates: start: 20080922
  2. PREDNISONE [Concomitant]

REACTIONS (2)
  - OEDEMA PERIPHERAL [None]
  - PLATELET COUNT INCREASED [None]
